FAERS Safety Report 19020305 (Version 8)
Quarter: 2023Q2

REPORT INFORMATION
  Report Type: Report from Study
  Country: US (occurrence: US)
  Receive Date: 20210317
  Receipt Date: 20230421
  Transmission Date: 20230722
  Serious: Yes (Hospitalization, Other)
  Sender: FDA-Public Use
  Company Number: NVSC2021US060230

PATIENT
  Sex: Male

DRUGS (1)
  1. COSENTYX [Suspect]
     Active Substance: SECUKINUMAB
     Indication: Product used for unknown indication
     Dosage: UNK
     Route: 065

REACTIONS (9)
  - Abdominal discomfort [Unknown]
  - Cardiac failure chronic [Unknown]
  - Neuromyopathy [Unknown]
  - Road traffic accident [Unknown]
  - Condition aggravated [Unknown]
  - Pain [Unknown]
  - Psoriasis [Unknown]
  - Pruritus [Unknown]
  - Nasopharyngitis [Unknown]
